FAERS Safety Report 6098528-4 (Version None)
Quarter: 2009Q1

REPORT INFORMATION
  Report Type: 
  Country: None (occurrence: None)
  Receive Date: 20090302
  Receipt Date: 20090224
  Transmission Date: 20090719
  Serious: Yes (Other)
  Sender: FDA-Public Use
  Company Number: US-BAYER-200911920NA

PATIENT
  Age: 52 Year
  Sex: Male
  Weight: 91 kg

DRUGS (1)
  1. CIPRO [Suspect]
     Indication: PROPHYLAXIS
     Dosage: TOTAL DAILY DOSE: 1000 MG
     Dates: start: 20080101, end: 20080101

REACTIONS (4)
  - MUSCULOSKELETAL PAIN [None]
  - PARAESTHESIA [None]
  - TENDON PAIN [None]
  - TENDON RUPTURE [None]
